FAERS Safety Report 25166896 (Version 1)
Quarter: 2025Q2

REPORT INFORMATION
  Report Type: Spontaneous
  Country: CZ (occurrence: CZ)
  Receive Date: 20250407
  Receipt Date: 20250407
  Transmission Date: 20250716
  Serious: Yes (Other)
  Sender: BRISTOL MYERS SQUIBB
  Company Number: CZ-BRISTOL-MYERS SQUIBB COMPANY-2025-049873

PATIENT
  Age: 64 Year
  Sex: Female

DRUGS (2)
  1. OPDIVO [Suspect]
     Active Substance: NIVOLUMAB
     Indication: Epithelioid mesothelioma
  2. OPDIVO [Suspect]
     Active Substance: NIVOLUMAB
     Indication: Thymoma

REACTIONS (9)
  - Myositis [Unknown]
  - Rhabdomyolysis [Unknown]
  - Dysarthria [Unknown]
  - Respiratory failure [Unknown]
  - Eyelid ptosis [Unknown]
  - Quadriparesis [Unknown]
  - Fatigue [Unknown]
  - Asthenia [Unknown]
  - General physical health deterioration [Unknown]
